FAERS Safety Report 7962149-6 (Version None)
Quarter: 2011Q4

REPORT INFORMATION
  Report Type: 
  Country: None (occurrence: None)
  Receive Date: 20111207
  Receipt Date: 20111201
  Transmission Date: 20120403
  Serious: Yes (Hospitalization)
  Sender: FDA-Public Use
  Company Number: CA-ABBOTT-11P-028-0880205-00

PATIENT
  Sex: Female

DRUGS (2)
  1. HUMIRA [Suspect]
     Indication: CROHN'S DISEASE
     Dosage: UNKNOWN
     Route: 058
     Dates: start: 20100910, end: 20110101
  2. HUMIRA [Suspect]
     Dosage: LOADING DOSE
     Route: 058
     Dates: start: 20111101

REACTIONS (6)
  - SHORT-BOWEL SYNDROME [None]
  - ASTHENIA [None]
  - PYREXIA [None]
  - MALNUTRITION [None]
  - DEHYDRATION [None]
  - WEIGHT DECREASED [None]
